FAERS Safety Report 7517239-9 (Version None)
Quarter: 2011Q2

REPORT INFORMATION
  Report Type: 
  Country: None (occurrence: None)
  Receive Date: 20110601
  Receipt Date: 20110523
  Transmission Date: 20111010
  Serious: Yes (Hospitalization)
  Sender: FDA-Public Use
  Company Number: US-ASTRAZENECA-2011SE19647

PATIENT
  Age: 40 Year
  Sex: Female

DRUGS (1)
  1. SEROQUEL [Suspect]
     Route: 048

REACTIONS (5)
  - DRUG INEFFECTIVE [None]
  - DRUG DOSE OMISSION [None]
  - MALAISE [None]
  - PERSONALITY CHANGE [None]
  - MENTAL DISORDER [None]
